FAERS Safety Report 23245048 (Version 1)
Quarter: 2023Q4

REPORT INFORMATION
  Report Type: Spontaneous
  Country: US (occurrence: US)
  Receive Date: 20231130
  Receipt Date: 20231130
  Transmission Date: 20240110
  Serious: Yes (Other)
  Sender: FDA-Public Use
  Company Number: US-AMGEN-USASP2023211207

PATIENT
  Age: 64 Year
  Sex: Male

DRUGS (4)
  1. RITUXIMAB [Suspect]
     Active Substance: RITUXIMAB
     Indication: Glomerulonephritis membranous
     Dosage: 1 GRAM, Q2WK
     Route: 065
  2. RITUXIMAB [Suspect]
     Active Substance: RITUXIMAB
     Dosage: 1 GRAM, Q2WK
     Route: 065
  3. TACROLIMUS [Concomitant]
     Active Substance: TACROLIMUS
  4. DAPAGLIFLOZIN [Concomitant]
     Active Substance: DAPAGLIFLOZIN

REACTIONS (4)
  - Glomerulonephritis membranous [Unknown]
  - Drug hypersensitivity [Unknown]
  - Drug effective for unapproved indication [Unknown]
  - Off label use [Unknown]
